FAERS Safety Report 23896728 (Version 1)
Quarter: 2024Q2

REPORT INFORMATION
  Report Type: Spontaneous
  Country: FR (occurrence: FR)
  Receive Date: 20240524
  Receipt Date: 20240524
  Transmission Date: 20240716
  Serious: Yes (Other)
  Sender: FDA-Public Use
  Company Number: FR-OTSUKA-2024_014293

PATIENT
  Age: 37 Year
  Sex: Female

DRUGS (4)
  1. ABILIFY [Suspect]
     Active Substance: ARIPIPRAZOLE
     Indication: Autism spectrum disorder
     Dosage: 5 MG, QD
     Route: 065
     Dates: start: 20240506, end: 202405
  2. ABILIFY [Suspect]
     Active Substance: ARIPIPRAZOLE
     Indication: Schizoid personality disorder
  3. ABILIFY [Suspect]
     Active Substance: ARIPIPRAZOLE
     Indication: Thinking abnormal
  4. DOLIPRANE [Concomitant]
     Active Substance: ACETAMINOPHEN
     Indication: Product used for unknown indication
     Dosage: UNK
     Route: 065

REACTIONS (12)
  - Depressed level of consciousness [Unknown]
  - Social avoidant behaviour [Unknown]
  - Psychomotor retardation [Unknown]
  - Mood swings [Unknown]
  - Bradykinesia [Unknown]
  - Irritability [Unknown]
  - Speech disorder [Unknown]
  - Somnolence [Unknown]
  - Drug ineffective for unapproved indication [Unknown]
  - Off label use [Unknown]
  - Off label use [Unknown]
  - Social problem [Unknown]

NARRATIVE: CASE EVENT DATE: 20240506
